FAERS Safety Report 9465935 (Version 1)
Quarter: 2013Q3

REPORT INFORMATION
  Report Type: Report from Study
  Country: US (occurrence: US)
  Receive Date: 20130820
  Receipt Date: 20130820
  Transmission Date: 20140515
  Serious: Yes (Hospitalization)
  Sender: FDA-Public Use
  Company Number: US-MERCK-1308USA005386

PATIENT
  Age: 52 Year
  Sex: Male
  Weight: 84.9 kg

DRUGS (9)
  1. MK-2206 [Suspect]
     Indication: ADENOCARCINOMA OF COLON
     Dosage: 200 MG, QD; 200 MG PO ON DAYS 1, 8, 15, 22, CYCLE 2.
     Route: 048
     Dates: start: 20130614
  2. MK-2206 [Suspect]
     Dosage: 200 MG, QD; 200 MG PO ON DAYS 1, 8, 15, 22, CYCLE 2
     Route: 048
     Dates: start: 20130718
  3. NEXIUM [Suspect]
  4. ALEVE [Suspect]
  5. DIOVAN [Suspect]
  6. GLIPIZIDE [Suspect]
  7. LIPITOR [Suspect]
  8. LOVENOX [Suspect]
  9. PRECOSE [Suspect]

REACTIONS (3)
  - Anaemia [Not Recovered/Not Resolved]
  - Pyrexia [Not Recovered/Not Resolved]
  - Fatigue [Not Recovered/Not Resolved]
